FAERS Safety Report 14533288 (Version 3)
Quarter: 2018Q2

REPORT INFORMATION
  Report Type: Report from Study
  Country: None (occurrence: US)
  Receive Date: 20180215
  Receipt Date: 20180514
  Transmission Date: 20180711
  Serious: Yes (Death, Hospitalization)
  Sender: FDA-Public Use
  Company Number: US-BAUSCH-BL-2018-004265

PATIENT
  Sex: Female

DRUGS (2)
  1. TETRABENAZINE. [Suspect]
     Active Substance: TETRABENAZINE
     Indication: HUNTINGTON^S DISEASE
     Dosage: 12.5MG, 2 TABLETS IN THE MORNING, 1 TABLET IN THE AFTERNOON, 2 TABLETS AT NIGHT
     Route: 065
     Dates: start: 201801
  2. XENAZINE [Suspect]
     Active Substance: TETRABENAZINE
     Indication: HUNTINGTON^S DISEASE
     Dosage: 12.5MG, 2 TABLETS IN THE MORNING, 1 TABLET IN THE AFTERNOON, 2 TABLETS AT NIGHT
     Route: 048
     Dates: end: 201801

REACTIONS (2)
  - Sepsis [Fatal]
  - Hospitalisation [Unknown]
